FAERS Safety Report 21707857 (Version 2)
Quarter: 2023Q1

REPORT INFORMATION
  Report Type: Report from Study
  Country: ES (occurrence: ES)
  Receive Date: 20221209
  Receipt Date: 20230127
  Transmission Date: 20230418
  Serious: Yes (Other)
  Sender: FDA-Public Use
  Company Number: ES-JNJFOC-20221214133

PATIENT

DRUGS (1)
  1. ERDAFITINIB [Suspect]
     Active Substance: ERDAFITINIB
     Indication: Transitional cell carcinoma
     Route: 048
     Dates: start: 20221107, end: 20221130

REACTIONS (2)
  - Blindness [Not Recovered/Not Resolved]
  - Ocular toxicity [Unknown]
